FAERS Safety Report 18719254 (Version 1)
Quarter: 2021Q1

REPORT INFORMATION
  Report Type: Spontaneous
  Country: US (occurrence: US)
  Receive Date: 20210108
  Receipt Date: 20210108
  Transmission Date: 20210419
  Serious: Yes (Other)
  Sender: FDA-Public Use
  Company Number: US-LUNDBECK-DKLU3026341

PATIENT
  Age: 78 Year
  Sex: Male

DRUGS (1)
  1. NORTHERA [Suspect]
     Active Substance: DROXIDOPA
     Indication: ORTHOSTATIC HYPOTENSION
     Dosage: TAKE  THREE TIMES A DAY AS NEEDED IF SYSTOLIC BLOOD PRESSURE IS 110 OR LOWER
     Route: 048

REACTIONS (2)
  - Atrial fibrillation [Unknown]
  - Blood pressure abnormal [Unknown]
